FAERS Safety Report 8508915-X (Version None)
Quarter: 2012Q3

REPORT INFORMATION
  Report Type: 
  Country: None (occurrence: None)
  Receive Date: 20120713
  Receipt Date: 20120704
  Transmission Date: 20120928
  Serious: Yes (Other)
  Sender: FDA-Public Use
  Company Number: JP-ASTRAZENECA-2012SE45976

PATIENT
  Age: 86 Year
  Sex: Female

DRUGS (6)
  1. ROPIVACAINE HYDROCHLORIDE [Suspect]
     Dosage: 4 ML/HOUR
     Route: 008
  2. CARBOCAIN [Suspect]
     Indication: PAIN
     Route: 008
  3. CARBOCAIN [Suspect]
     Route: 008
  4. ROPIVACAINE HYDROCHLORIDE [Suspect]
     Indication: PAIN
     Dosage: CONTINUOUS INJECTIONS
     Route: 008
  5. GABAPENTIN [Concomitant]
  6. ETODOLAC [Concomitant]

REACTIONS (4)
  - MYOCLONUS [None]
  - GRIP STRENGTH DECREASED [None]
  - DYSKINESIA [None]
  - HYPOAESTHESIA [None]
